FAERS Safety Report 8176827-X (Version None)
Quarter: 2012Q1

REPORT INFORMATION
  Report Type: 
  Country: None (occurrence: None)
  Receive Date: 20120301
  Receipt Date: 20120221
  Transmission Date: 20120608
  Serious: Yes (Other)
  Sender: FDA-Public Use
  Company Number: IT-SANOFI-AVENTIS-2012SA011584

PATIENT
  Age: 75 Year
  Sex: Male

DRUGS (2)
  1. ASPIRIN [Suspect]
     Route: 048
  2. PLAVIX [Suspect]
     Route: 048
     Dates: start: 20120101

REACTIONS (2)
  - HAEMATOCHEZIA [None]
  - ANAEMIA [None]
